FAERS Safety Report 5825574-5 (Version None)
Quarter: 2008Q3

REPORT INFORMATION
  Report Type: 
  Country: None (occurrence: None)
  Receive Date: 20080725
  Receipt Date: 20080725
  Transmission Date: 20090109
  Serious: Yes (Hospitalization)
  Sender: FDA-Public Use
  Company Number: None

PATIENT
  Sex: Female
  Weight: 59 kg

DRUGS (1)
  1. TEMOZOLOMIDE [Suspect]
     Dosage: 4200 MG

REACTIONS (2)
  - PETECHIAE [None]
  - PLATELET COUNT DECREASED [None]
